FAERS Safety Report 7502738-6 (Version None)
Quarter: 2011Q2

REPORT INFORMATION
  Report Type: 
  Country: None (occurrence: None)
  Receive Date: 20110525
  Receipt Date: 20110521
  Transmission Date: 20111010
  Serious: Yes (Other)
  Sender: FDA-Public Use
  Company Number: US-PFIZER INC-2011110072

PATIENT
  Age: 9 Year
  Sex: Male

DRUGS (1)
  1. VIAGRA [Suspect]
     Dosage: UNK

REACTIONS (3)
  - ACCIDENTAL DRUG INTAKE BY CHILD [None]
  - HALLUCINATION [None]
  - ERECTION INCREASED [None]
